FAERS Safety Report 10009414 (Version 1)
Quarter: 2014Q1

REPORT INFORMATION
  Report Type: Spontaneous
  Country: US (occurrence: US)
  Receive Date: 20140313
  Receipt Date: 20140313
  Transmission Date: 20141002
  Serious: Yes (Other)
  Sender: FDA-Public Use
  Company Number: US-INCYTE CORPORATION-2012IN001528

PATIENT
  Age: 63 Year
  Sex: Male

DRUGS (4)
  1. JAKAFI [Suspect]
     Indication: MYELOFIBROSIS
     Dosage: 10 MG, BID
     Route: 048
     Dates: start: 201206, end: 20120801
  2. JAKAFI [Suspect]
     Dosage: 5 MG, BID
     Dates: start: 20120802
  3. ALLOPURINOL [Concomitant]
  4. AVACOR [Concomitant]

REACTIONS (1)
  - Platelet count decreased [Unknown]
